FAERS Safety Report 21560797 (Version 1)
Quarter: 2022Q4

REPORT INFORMATION
  Report Type: Spontaneous
  Country: US (occurrence: None)
  Receive Date: 20221106
  Receipt Date: 20221106
  Transmission Date: 20230113
  Serious: No
  Sender: FDA-Public Use
  Company Number: None

PATIENT
  Age: 21 Year
  Sex: Female
  Weight: 54 kg

DRUGS (2)
  1. DEXTROAMPHET SACCHARAT, AMPHET ASPARTATE, DEXTROAMPHET SULFATE AND AMP [Suspect]
     Active Substance: AMPHETAMINE ASPARTATE\AMPHETAMINE SULFATE\DEXTROAMPHETAMINE SACCHARATE\DEXTROAMPHETAMINE SULFATE
  2. 10 mg amphetamine salts [Concomitant]

REACTIONS (8)
  - Somnolence [None]
  - Headache [None]
  - Feeling abnormal [None]
  - Product physical consistency issue [None]
  - Product physical issue [None]
  - Product colour issue [None]
  - Incorrect dose administered [None]
  - Product substitution issue [None]

NARRATIVE: CASE EVENT DATE: 20221001
